FAERS Safety Report 8349120-X (Version None)
Quarter: 2012Q2

REPORT INFORMATION
  Report Type: 
  Country: None (occurrence: None)
  Receive Date: 20120508
  Receipt Date: 20120427
  Transmission Date: 20120825
  Serious: Yes (Life-Threatening)
  Sender: FDA-Public Use
  Company Number: 1272252

PATIENT
  Age: 39 Year
  Sex: Male

DRUGS (4)
  1. OCTREOTIDE ACETATE [Concomitant]
  2. DEXMEDETOMIDINE HYDROCHLORIDE [Suspect]
     Indication: PRODUCT USED FOR UNKNOWN INDICATION
     Dosage: 1680 UG MICROGRAM(S)
  3. FENTANYL CITRATE [Suspect]
     Indication: PRODUCT USED FOR UNKNOWN INDICATION
  4. PROPOFOL [Suspect]
     Indication: PRODUCT USED FOR UNKNOWN INDICATION

REACTIONS (2)
  - PULSE ABSENT [None]
  - HYPOTENSION [None]
